FAERS Safety Report 9155123 (Version 1)
Quarter: 2013Q1

REPORT INFORMATION
  Report Type: Spontaneous
  Country: CH (occurrence: None)
  Receive Date: 20130205
  Receipt Date: 20130205
  Transmission Date: 20140127
  Serious: Yes (Other)
  Sender: FDA-Public Use
  Company Number: 2013-01423

PATIENT
  Age: 85 Year
  Sex: Female

DRUGS (2)
  1. BETAMETHASONE (UNKNOWN) (BETAMETHASONE) UNK, UNKUNK [Suspect]
     Indication: BACK PAIN
     Route: 030
  2. AMIODARONE (AMIODARONE) [Concomitant]

REACTIONS (2)
  - Memory impairment [None]
  - Memory impairment [None]
